FAERS Safety Report 23615551 (Version 1)
Quarter: 2024Q1

REPORT INFORMATION
  Report Type: Spontaneous
  Country: ES (occurrence: None)
  Receive Date: 20240311
  Receipt Date: 20240311
  Transmission Date: 20240410
  Serious: No
  Sender: FDA-Public Use
  Company Number: ES-ROCHE-3520990

PATIENT
  Sex: Female
  Weight: 12.9 kg

DRUGS (6)
  1. OCREVUS [Suspect]
     Active Substance: OCRELIZUMAB
     Indication: Product used for unknown indication
     Dosage: SUBSEQUENT DOSE 21/JUL/2020,
     Route: 064
     Dates: start: 20200709
  2. OCREVUS [Suspect]
     Active Substance: OCRELIZUMAB
     Route: 064
     Dates: start: 20210104
  3. CYANOCOBALAMIN\FOLIC ACID\POTASSIUM IODIDE [Concomitant]
     Active Substance: CYANOCOBALAMIN\FOLIC ACID\POTASSIUM IODIDE
     Indication: Iron deficiency
     Dates: start: 20210712, end: 20220731
  4. FERBISOL [Concomitant]
     Indication: Iron deficiency
  5. CARIBAN [Concomitant]
     Indication: Nausea
  6. FERPLEX [Concomitant]
     Indication: Iron deficiency

REACTIONS (2)
  - Foetal exposure during pregnancy [Unknown]
  - COVID-19 [Recovered/Resolved]
